FAERS Safety Report 12538094 (Version 1)
Quarter: 2016Q3

REPORT INFORMATION
  Report Type: Spontaneous
  Country: FR (occurrence: FR)
  Receive Date: 20160707
  Receipt Date: 20160707
  Transmission Date: 20161109
  Serious: Yes (Other)
  Sender: FDA-Public Use
  Company Number: FR-SA-2016SA122669

PATIENT
  Age: 86 Year
  Sex: Female

DRUGS (15)
  1. SMECTA [Concomitant]
     Active Substance: MONTMORILLONITE
     Route: 048
  2. KALEORID [Concomitant]
     Active Substance: POTASSIUM CHLORIDE
     Route: 048
  3. TRIATEC [Concomitant]
     Active Substance: RAMIPRIL
     Route: 048
  4. LANTUS [Concomitant]
     Active Substance: INSULIN GLARGINE
     Route: 058
  5. PARIET [Concomitant]
     Active Substance: RABEPRAZOLE SODIUM
     Route: 048
     Dates: end: 20160323
  6. APIDRA [Suspect]
     Active Substance: INSULIN GLULISINE
     Indication: TYPE 1 DIABETES MELLITUS
     Route: 058
     Dates: end: 20160323
  7. LASILIX [Concomitant]
     Active Substance: FUROSEMIDE
     Route: 048
  8. CORDARONE [Concomitant]
     Active Substance: AMIODARONE HYDROCHLORIDE
     Route: 048
  9. CARDENSIEL [Concomitant]
     Active Substance: BISOPROLOL FUMARATE
     Route: 048
  10. PROCTOLOG [Concomitant]
     Active Substance: TRIMEBUTINE
     Route: 054
  11. CALCIDOSE VITAMINE D [Concomitant]
     Active Substance: CALCIUM\CHOLECALCIFEROL
     Route: 048
  12. DEROXAT [Concomitant]
     Active Substance: PAROXETINE HYDROCHLORIDE
     Route: 048
  13. EFFERALGAN [Concomitant]
     Active Substance: ACETAMINOPHEN
     Route: 048
  14. COUMADINE [Concomitant]
     Active Substance: WARFARIN SODIUM
     Route: 048
  15. LOPERAMIDE [Concomitant]
     Active Substance: LOPERAMIDE
     Route: 048

REACTIONS (3)
  - Fall [Recovered/Resolved]
  - Hypoglycaemia [Recovered/Resolved]
  - Malaise [Recovered/Resolved]

NARRATIVE: CASE EVENT DATE: 20160320
